FAERS Safety Report 25997204 (Version 2)
Quarter: 2025Q4

REPORT INFORMATION
  Report Type: Spontaneous
  Country: US (occurrence: US)
  Receive Date: 20251104
  Receipt Date: 20251224
  Transmission Date: 20260117
  Serious: Yes (Other)
  Sender: PFIZER
  Company Number: US-PFIZER INC-PV202500128140

PATIENT
  Sex: Female

DRUGS (1)
  1. ELREXFIO [Suspect]
     Active Substance: ELRANATAMAB-BCMM
     Dosage: UNK

REACTIONS (3)
  - Plasma cell myeloma [Unknown]
  - Malignant neoplasm progression [Unknown]
  - Fatigue [Not Recovered/Not Resolved]
